FAERS Safety Report 5050108-5 (Version None)
Quarter: 2006Q3

REPORT INFORMATION
  Report Type: 
  Country: None (occurrence: None)
  Receive Date: 20060713
  Receipt Date: 20060707
  Transmission Date: 20061208
  Serious: Yes (Other)
  Sender: FDA-Public Use
  Company Number: 2006UW14072

PATIENT
  Sex: Female

DRUGS (1)
  1. IRESSA [Suspect]
     Route: 048

REACTIONS (1)
  - X-RAY ABNORMAL [None]
